FAERS Safety Report 23403098 (Version 1)
Quarter: 2024Q1

REPORT INFORMATION
  Report Type: Spontaneous
  Country: US (occurrence: US)
  Receive Date: 20240116
  Receipt Date: 20240116
  Transmission Date: 20240409
  Serious: Yes (Other)
  Sender: FDA-Public Use
  Company Number: None

PATIENT
  Age: 50 Year
  Sex: Female

DRUGS (13)
  1. ACETAZOLAMIDE [Suspect]
     Active Substance: ACETAZOLAMIDE
     Indication: Open angle glaucoma
     Dosage: UNK
     Route: 065
  2. ACETAZOLAMIDE [Suspect]
     Active Substance: ACETAZOLAMIDE
     Indication: Intraocular pressure increased
     Dosage: 500 MILLIGRAM, BID
     Route: 065
  3. BRIMONIDINE [Suspect]
     Active Substance: BRIMONIDINE TARTRATE
     Indication: Open angle glaucoma
     Dosage: UNK TID (THRICE DAILY IN THE LEFT EYE)
     Route: 065
  4. LATANOPROST\NETARSUDIL MESYLATE [Suspect]
     Active Substance: LATANOPROST\NETARSUDIL MESYLATE
     Indication: Open angle glaucoma
     Dosage: UNK, AT BED TIME
     Route: 065
  5. KENALOG [Concomitant]
     Active Substance: TRIAMCINOLONE ACETONIDE
     Indication: Uveitis
     Dosage: UNK (SUBTENON ROUTE)
     Route: 065
  6. LOTEPREDNOL [Concomitant]
     Active Substance: LOTEPREDNOL
     Indication: Uveitis
     Dosage: UNK
     Route: 065
  7. LOTEPREDNOL [Concomitant]
     Active Substance: LOTEPREDNOL
     Indication: Antiinflammatory therapy
     Dosage: UNK, BID
     Route: 065
  8. PREDNISOLONE ACETATE [Concomitant]
     Active Substance: PREDNISOLONE ACETATE
     Indication: Uveitis
     Dosage: UNK, BID (TWICE DAILY)
     Route: 061
  9. PREDNISOLONE ACETATE [Concomitant]
     Active Substance: PREDNISOLONE ACETATE
     Indication: Antiinflammatory therapy
     Dosage: UNK
     Route: 065
  10. ILEVRO [Concomitant]
     Active Substance: NEPAFENAC
     Indication: Uveitis
     Dosage: UNK, BID
     Route: 061
  11. ILEVRO [Concomitant]
     Active Substance: NEPAFENAC
     Indication: Antiinflammatory therapy
     Dosage: UNK, (IN LEFT EYE)
     Route: 065
  12. DORZOLAMIDE [Concomitant]
     Active Substance: DORZOLAMIDE
     Indication: Open angle glaucoma
     Dosage: UNK
     Route: 065
  13. TRAVOPROST [Concomitant]
     Active Substance: TRAVOPROST
     Indication: Open angle glaucoma
     Dosage: UNK (IN RIGHT EYE)
     Route: 065

REACTIONS (1)
  - Drug ineffective [Unknown]
